FAERS Safety Report 11203199 (Version 1)
Quarter: 2015Q2

REPORT INFORMATION
  Report Type: Report from Study
  Country: US (occurrence: US)
  Receive Date: 20150619
  Receipt Date: 20150619
  Transmission Date: 20150821
  Serious: Yes (Other)
  Sender: FDA-Public Use
  Company Number: US-PFIZER INC-HQWYE314412JAN06

PATIENT
  Age: 59 Year
  Sex: Female
  Weight: 72 kg

DRUGS (1)
  1. BAZEDOXIFENE ACETATE/EQUILIN SULFATE SODIUM/ESTRONE SODIUM SULFATE [Suspect]
     Active Substance: BAZEDOXIFENE ACETATE\ESTROGENS, CONJUGATED
     Indication: MENOPAUSE
     Dosage: 1.0 DF, 1X/DAY
     Route: 048
     Dates: start: 20031020, end: 20051013

REACTIONS (2)
  - Breast cancer [Not Recovered/Not Resolved]
  - Intraductal proliferative breast lesion [None]

NARRATIVE: CASE EVENT DATE: 20060109
